FAERS Safety Report 13692311 (Version 1)
Quarter: 2017Q2

REPORT INFORMATION
  Report Type: Report from Study
  Country: US (occurrence: US)
  Receive Date: 20170627
  Receipt Date: 20170627
  Transmission Date: 20170830
  Serious: Yes (Other)
  Sender: FDA-Public Use
  Company Number: PHEH2017US019365

PATIENT
  Age: 69 Year
  Sex: Female

DRUGS (1)
  1. GILENYA [Suspect]
     Active Substance: FINGOLIMOD HYDROCHLORIDE
     Indication: PRODUCT USED FOR UNKNOWN INDICATION
     Dosage: 0.5 MG, QD
     Route: 048
     Dates: start: 20170613

REACTIONS (6)
  - Musculoskeletal stiffness [Unknown]
  - Toothache [Unknown]
  - Fatigue [Recovering/Resolving]
  - Urinary retention [Unknown]
  - Bladder disorder [Unknown]
  - Tooth abscess [Unknown]

NARRATIVE: CASE EVENT DATE: 201706
